FAERS Safety Report 5329268-4 (Version None)
Quarter: 2007Q2

REPORT INFORMATION
  Report Type: 
  Country: None (occurrence: None)
  Receive Date: 20070220
  Receipt Date: 20061204
  Transmission Date: 20071010
  Serious: No
  Sender: FDA-Public Use
  Company Number: WAES 0612USA00520

PATIENT
  Age: 74 Year
  Sex: Female

DRUGS (5)
  1. JANUVIA [Suspect]
     Indication: DIABETES MELLITUS NON-INSULIN-DEPENDENT
     Dosage: 100 MG, DAILY, PO
     Route: 048
     Dates: start: 20061117
  2. DARVOCET-N 100 [Concomitant]
  3. LIPITOR [Concomitant]
  4. HYOSCYAMINE [Concomitant]
  5. QUININE HYDROCHLORIDE [Concomitant]

REACTIONS (2)
  - OEDEMA PERIPHERAL [None]
  - OFF LABEL USE [None]
